FAERS Safety Report 7461942 (Version 3)
Quarter: 2013Q3

REPORT INFORMATION
  Report Type: Spontaneous
  Country: US (occurrence: US)
  Receive Date: 20100709
  Receipt Date: 20130718
  Transmission Date: 20140515
  Serious: Yes (Other)
  Sender: FDA-Public Use
  Company Number: US-ROCHE-691821

PATIENT
  Age: 27 Year
  Sex: Male
  Weight: 81.6 kg

DRUGS (6)
  1. ACCUTANE [Suspect]
     Indication: ACNE
     Route: 048
  2. ACCUTANE [Suspect]
     Route: 048
  3. ACCUTANE [Suspect]
     Route: 048
     Dates: start: 20000930, end: 200103
  4. ACCUTANE [Suspect]
     Route: 048
  5. AMNESTEEM [Suspect]
     Indication: ACNE
     Route: 065
     Dates: start: 20050506, end: 200510
  6. BENADRYL [Concomitant]

REACTIONS (8)
  - Inflammatory bowel disease [Unknown]
  - Crohn^s disease [Unknown]
  - Anal fissure [Unknown]
  - Ileal stenosis [Unknown]
  - Headache [Unknown]
  - Lip dry [Unknown]
  - Foot fracture [Unknown]
  - Xerosis [Unknown]
